FAERS Safety Report 10378100 (Version 1)
Quarter: 2014Q3

REPORT INFORMATION
  Report Type: Spontaneous
  Country: US (occurrence: None)
  Receive Date: 20140811
  Receipt Date: 20140811
  Transmission Date: 20150326
  Serious: Yes (Hospitalization, Other)
  Sender: FDA-Public Use
  Company Number: None

PATIENT
  Sex: Female

DRUGS (11)
  1. HUMIRA [Suspect]
     Active Substance: ADALIMUMAB
     Indication: RHEUMATOID ARTHRITIS
     Dosage: 40 MG QOW  SQ?
     Route: 058
     Dates: start: 20131221
  2. NORCO [Concomitant]
     Active Substance: ACETAMINOPHEN\HYDROCODONE BITARTRATE
  3. RELPAX [Concomitant]
     Active Substance: ELETRIPTAN HYDROBROMIDE
  4. ESTRADIOL. [Concomitant]
     Active Substance: ESTRADIOL
  5. SYNTHROID [Concomitant]
     Active Substance: LEVOTHYROXINE SODIUM
  6. GABAPENTIN. [Concomitant]
     Active Substance: GABAPENTIN
  7. LISINOPRIL. [Concomitant]
     Active Substance: LISINOPRIL
  8. LEFLUNOMIDE. [Concomitant]
     Active Substance: LEFLUNOMIDE
  9. FENTANYL. [Concomitant]
     Active Substance: FENTANYL
  10. MELOXICAM. [Concomitant]
     Active Substance: MELOXICAM
  11. DOXEPIN [Concomitant]
     Active Substance: DOXEPIN

REACTIONS (5)
  - Loss of consciousness [None]
  - Cyanosis [None]
  - Convulsion [None]
  - Concussion [None]
  - Hypotension [None]
